FAERS Safety Report 19956967 (Version 2)
Quarter: 2021Q4

REPORT INFORMATION
  Report Type: Spontaneous
  Country: US (occurrence: None)
  Receive Date: 20211014
  Receipt Date: 20211116
  Transmission Date: 20220303
  Serious: No
  Sender: FDA-Public Use
  Company Number: 2021A772720

PATIENT
  Age: 51 Year
  Sex: Male
  Weight: 80.3 kg

DRUGS (1)
  1. BYDUREON [Suspect]
     Active Substance: EXENATIDE
     Indication: Type 2 diabetes mellitus
     Route: 065
     Dates: start: 20210920, end: 20210920

REACTIONS (2)
  - Abdominal mass [Unknown]
  - Skin mass [Unknown]
